FAERS Safety Report 12174177 (Version 1)
Quarter: 2016Q1

REPORT INFORMATION
  Report Type: Spontaneous
  Country: TR (occurrence: TR)
  Receive Date: 20160314
  Receipt Date: 20160314
  Transmission Date: 20160526
  Serious: Yes (Life-Threatening)
  Sender: FDA-Public Use
  Company Number: TR-HOSPIRA-3198400

PATIENT
  Age: 62 Year
  Sex: Female
  Weight: 73 kg

DRUGS (2)
  1. INSULIN [Concomitant]
     Active Substance: INSULIN NOS
     Indication: DIABETES MELLITUS
  2. ANZATAX                            /00285201/ [Suspect]
     Active Substance: CLONAZEPAM
     Indication: PRODUCT USED FOR UNKNOWN INDICATION
     Dosage: 308, DAILY
     Route: 042
     Dates: start: 20160219, end: 20160219

REACTIONS (4)
  - Abdominal pain upper [Recovering/Resolving]
  - Flushing [Not Recovered/Not Resolved]
  - Cold sweat [Not Recovered/Not Resolved]
  - Dyspnoea [Recovering/Resolving]

NARRATIVE: CASE EVENT DATE: 20160219
